FAERS Safety Report 7033967-6 (Version None)
Quarter: 2010Q4

REPORT INFORMATION
  Report Type: 
  Country: None (occurrence: None)
  Receive Date: 20101005
  Receipt Date: 20100921
  Transmission Date: 20110411
  Serious: Yes (Congenital Anomaly, Other)
  Sender: FDA-Public Use
  Company Number: 2010AP002055

PATIENT

DRUGS (2)
  1. TRAZODONE HYDROCHLORIDE [Suspect]
     Dosage: 50 MG;TRPL
     Route: 064
  2. VENLAFAXINE HCL [Suspect]
     Dosage: TRPL
     Route: 064

REACTIONS (5)
  - COARCTATION OF THE AORTA [None]
  - CONGENITAL ABSENCE OF BILE DUCTS [None]
  - CONGENITAL SMALL INTESTINAL ATRESIA [None]
  - MATERNAL DRUGS AFFECTING FOETUS [None]
  - PREMATURE BABY [None]
